FAERS Safety Report 8142400-2 (Version None)
Quarter: 2012Q1

REPORT INFORMATION
  Report Type: 
  Country: None (occurrence: None)
  Receive Date: 20120216
  Receipt Date: 20120208
  Transmission Date: 20120608
  Serious: Yes (Hospitalization)
  Sender: FDA-Public Use
  Company Number: DE-BRISTOL-MYERS SQUIBB COMPANY-16386922

PATIENT
  Age: 85 Year
  Sex: Female

DRUGS (8)
  1. LEVOTHYROXINE SODIUM [Concomitant]
     Dosage: 1DF: 75 UNITS NOS TABS
  2. PREDNISONE TAB [Concomitant]
  3. ASPIRIN [Concomitant]
     Dosage: 1DF: 100 UNITS NOS
  4. OLMESARTAN MEDOXOMIL AND HYDROCHLOROTHIZIDE [Concomitant]
     Dosage: 1DF: 20/12.5  UNITS NOS
  5. ORENCIA [Suspect]
  6. ZOCOR [Concomitant]
  7. ENBREL [Concomitant]
     Route: 058
  8. OSSOFORTIN FORTE [Concomitant]
     Dosage: CHEWABLE TABLETS

REACTIONS (1)
  - SKIN HAEMORRHAGE [None]
